FAERS Safety Report 18424410 (Version 3)
Quarter: 2020Q4

REPORT INFORMATION
  Report Type: Report from Study
  Country: None (occurrence: CA)
  Receive Date: 20201026
  Receipt Date: 20201109
  Transmission Date: 20210114
  Serious: Yes (Life-Threatening, Hospitalization, Other)
  Sender: FDA-Public Use
  Company Number: CA-ABBVIE-20K-028-3619178-00

PATIENT
  Sex: Male

DRUGS (1)
  1. RINVOQ [Suspect]
     Active Substance: UPADACITINIB
     Indication: RHEUMATOID ARTHRITIS
     Route: 048
     Dates: start: 20200409, end: 20201008

REACTIONS (7)
  - Unevaluable event [Unknown]
  - Pneumonia [Unknown]
  - Haemodialysis [Unknown]
  - Localised infection [Unknown]
  - Malaise [Unknown]
  - Diabetes mellitus [Unknown]
  - Gas gangrene [Unknown]

NARRATIVE: CASE EVENT DATE: 2020
